FAERS Safety Report 18220949 (Version 1)
Quarter: 2020Q3

REPORT INFORMATION
  Report Type: Spontaneous
  Country: CA (occurrence: CA)
  Receive Date: 20200902
  Receipt Date: 20200902
  Transmission Date: 20201103
  Serious: Yes (Hospitalization, Other)
  Sender: FDA-Public Use
  Company Number: CA-IPCA LABORATORIES LIMITED-IPC-2020-CA-002867

PATIENT

DRUGS (6)
  1. SENOKOT [Concomitant]
     Active Substance: SENNOSIDES
     Indication: PRODUCT USED FOR UNKNOWN INDICATION
     Dosage: UNK
     Route: 065
  2. AMOXICILLIN. [Concomitant]
     Active Substance: AMOXICILLIN
     Indication: TOOTH ABSCESS
     Dosage: UNK
     Route: 065
  3. TERAZOSIN [Concomitant]
     Active Substance: TERAZOSIN HYDROCHLORIDE
     Indication: PRODUCT USED FOR UNKNOWN INDICATION
     Dosage: UNK
     Route: 065
  4. OLMESARTAN [Concomitant]
     Active Substance: OLMESARTAN
     Indication: TOOTH ABSCESS
     Dosage: UNK
     Route: 065
  5. LEVOTHYROXINE. [Concomitant]
     Active Substance: LEVOTHYROXINE
     Indication: TOOTH ABSCESS
     Dosage: UNK
     Route: 065
  6. HYDROCHLOROTHIAZIDE TABLETS [Suspect]
     Active Substance: HYDROCHLOROTHIAZIDE
     Indication: HYPERTENSION
     Dosage: UNK
     Route: 065

REACTIONS (9)
  - Presyncope [Recovered/Resolved]
  - Hypovolaemic shock [Recovered/Resolved]
  - Dyspnoea [Recovered/Resolved]
  - Dizziness [Recovered/Resolved]
  - Pulseless electrical activity [Recovered/Resolved]
  - Hyperhidrosis [Recovered/Resolved]
  - Acute respiratory distress syndrome [Recovered/Resolved]
  - Capillary leak syndrome [Recovered/Resolved]
  - Non-cardiogenic pulmonary oedema [Recovered/Resolved]
